FAERS Safety Report 21951071 (Version 3)
Quarter: 2024Q4

REPORT INFORMATION
  Report Type: Spontaneous
  Country: US (occurrence: US)
  Receive Date: 20230203
  Receipt Date: 20241119
  Transmission Date: 20250115
  Serious: No
  Sender: PFIZER
  Company Number: US-PFIZER INC-PV202300020349

PATIENT
  Age: 66 Year
  Sex: Female

DRUGS (2)
  1. XELJANZ [Suspect]
     Active Substance: TOFACITINIB CITRATE
     Indication: Colitis ulcerative
     Dosage: 10 MG
  2. XELJANZ [Suspect]
     Active Substance: TOFACITINIB CITRATE
     Dosage: XELJANZ 5 MG PO (ORAL) BID (TWICE A DAY) AND XELJANZ 5 MG PO (ORAL) QD (ONCE A DAY)
     Route: 048

REACTIONS (3)
  - Blood pressure abnormal [Unknown]
  - Off label use [Unknown]
  - Product dispensing error [Unknown]
